FAERS Safety Report 13365722 (Version 1)
Quarter: 2017Q1

REPORT INFORMATION
  Report Type: Spontaneous
  Country: US (occurrence: US)
  Receive Date: 20170323
  Receipt Date: 20170323
  Transmission Date: 20170429
  Serious: No
  Sender: FDA-Public Use
  Company Number: US-TEVA-752804USA

PATIENT
  Age: 56 Year
  Sex: Female
  Weight: 96.25 kg

DRUGS (15)
  1. SYNRIBO [Suspect]
     Active Substance: OMACETAXINE MEPESUCCINATE
     Indication: CHRONIC MYELOID LEUKAEMIA
     Dosage: 5.42 MILLIGRAM DAILY; HOME ADMINISTRATION
     Dates: start: 20170317
  2. LASIX [Concomitant]
     Active Substance: FUROSEMIDE
  3. CITRACAL [Concomitant]
     Active Substance: CALCIUM CITRATE
  4. VITAMIN E [Concomitant]
     Active Substance: .ALPHA.-TOCOPHEROL
  5. ATENOLOL. [Concomitant]
     Active Substance: ATENOLOL
  6. LEVOTHYROXINE. [Concomitant]
     Active Substance: LEVOTHYROXINE
  7. PAROXETINE. [Concomitant]
     Active Substance: PAROXETINE
  8. MULTIVITAMIN [Concomitant]
     Active Substance: VITAMINS
  9. METHOTREXATE. [Concomitant]
     Active Substance: METHOTREXATE
  10. POTASSIUM GLUCONATE [Concomitant]
     Active Substance: POTASSIUM GLUCONATE
  11. PROBIOTIC [Concomitant]
     Active Substance: PROBIOTICS NOS
  12. PRAMIPEXOLE. [Concomitant]
     Active Substance: PRAMIPEXOLE
     Indication: RESTLESS LEGS SYNDROME
  13. ENALAPRIL [Concomitant]
     Active Substance: ENALAPRIL
  14. AMBIEN [Concomitant]
     Active Substance: ZOLPIDEM TARTRATE
  15. FOLIC ACID. [Concomitant]
     Active Substance: FOLIC ACID

REACTIONS (6)
  - Nausea [Recovering/Resolving]
  - Injection site erythema [Recovering/Resolving]
  - Diarrhoea [Recovering/Resolving]
  - Fatigue [Recovering/Resolving]
  - Stomatitis [Recovering/Resolving]
  - Vomiting [Recovering/Resolving]

NARRATIVE: CASE EVENT DATE: 20170318
